FAERS Safety Report 9248462 (Version 3)
Quarter: 2013Q4

REPORT INFORMATION
  Report Type: Report from Study
  Country: BR (occurrence: BR)
  Receive Date: 20130423
  Receipt Date: 20131108
  Transmission Date: 20140711
  Serious: Yes (Hospitalization)
  Sender: FDA-Public Use
  Company Number: BR-ROCHE-1133773

PATIENT
  Age: 47 Year
  Sex: Female
  Weight: 55 kg

DRUGS (3)
  1. ACTEMRA [Suspect]
     Indication: RHEUMATOID ARTHRITIS
     Dosage: LAST INFUSION: MAR/2013
     Route: 065
     Dates: start: 20110127, end: 201305
  2. PREDNISONE [Concomitant]
  3. OMEPRAZOLE [Concomitant]

REACTIONS (6)
  - Osteoarthritis [Recovered/Resolved]
  - Arthropathy [Recovered/Resolved]
  - Rectal neoplasm [Recovered/Resolved]
  - Alopecia [Recovered/Resolved]
  - Blood pressure fluctuation [Recovered/Resolved]
  - Pain [Unknown]
